FAERS Safety Report 9162865 (Version 2)
Quarter: 2013Q1

REPORT INFORMATION
  Report Type: Spontaneous
  Country: DE (occurrence: None)
  Receive Date: 20130221
  Receipt Date: 20130305
  Transmission Date: 20140127
  Serious: Yes (Hospitalization, Other)
  Sender: FDA-Public Use
  Company Number: AEDEU201200557

PATIENT
  Age: 72 Year
  Sex: Male
  Weight: 74 kg

DRUGS (5)
  1. GAMUNEX (IMMUNE GLOBULIN IV (HUMAN), CAPRYLATE/CHROMATOGRAPHY PURIFIED) (10 PCT) [Suspect]
     Indication: CHRONIC INFLAMMATORY DEMYELINATING POLYRADICULONEUROPATHY
     Route: 042
     Dates: start: 20121119, end: 20121123
  2. VOCADO  HCT [Concomitant]
  3. ASA [Concomitant]
  4. BISOPROLOL [Concomitant]
  5. LERCANIDIPINE /1366402/ [Concomitant]

REACTIONS (4)
  - Rash generalised [None]
  - Skin fissures [None]
  - Drug hypersensitivity [None]
  - Palmoplantar keratoderma [None]
